FAERS Safety Report 13609067 (Version 5)
Quarter: 2017Q4

REPORT INFORMATION
  Report Type: Spontaneous
  Country: IT (occurrence: IT)
  Receive Date: 20170602
  Receipt Date: 20171229
  Transmission Date: 20180320
  Serious: Yes (Death, Hospitalization)
  Sender: FDA-Public Use
  Company Number: IT-009507513-1706ITA000536

PATIENT
  Age: 59 Year
  Sex: Male

DRUGS (2)
  1. LORAZEPAM. [Suspect]
     Active Substance: LORAZEPAM
     Indication: PRODUCT USED FOR UNKNOWN INDICATION
     Dosage: 2.5 MG,
     Route: 065
  2. REMERON [Suspect]
     Active Substance: MIRTAZAPINE
     Indication: PRODUCT USED FOR UNKNOWN INDICATION
     Dosage: 990 MG, ONCE
     Route: 065

REACTIONS (6)
  - Psychomotor hyperactivity [Unknown]
  - Somnolence [Unknown]
  - Toxicity to various agents [Fatal]
  - Cardiac arrest [Unknown]
  - Confusional state [Unknown]
  - Intentional overdose [Fatal]
